FAERS Safety Report 6538783-7 (Version None)
Quarter: 2010Q1

REPORT INFORMATION
  Report Type: 
  Country: None (occurrence: None)
  Receive Date: 20100114
  Receipt Date: 20100114
  Transmission Date: 20100710
  Serious: Yes (Other)
  Sender: FDA-Public Use
  Company Number: None

PATIENT
  Age: 23 Year
  Sex: Female
  Weight: 54.4316 kg

DRUGS (1)
  1. EFFEXOR [Suspect]
     Indication: ANXIETY
     Dosage: 150MG ONCE A DAY
     Dates: start: 20060607, end: 20080731

REACTIONS (4)
  - ABNORMAL BEHAVIOUR [None]
  - HIGH RISK SEXUAL BEHAVIOUR [None]
  - PARTNER STRESS [None]
  - PERSONALITY CHANGE [None]
